FAERS Safety Report 9291324 (Version 1)
Quarter: 2013Q2

REPORT INFORMATION
  Report Type: Spontaneous
  Country: US (occurrence: US)
  Receive Date: 20130515
  Receipt Date: 20130515
  Transmission Date: 20140414
  Serious: Yes (Hospitalization, Disabling, Other)
  Sender: FDA-Public Use
  Company Number: US-GLAXOSMITHKLINE-A1022802A

PATIENT
  Sex: Female

DRUGS (6)
  1. BENLYSTA [Suspect]
     Indication: SYSTEMIC LUPUS ERYTHEMATOSUS
     Dosage: 930MG MONTHLY
     Route: 042
     Dates: start: 20110916, end: 20130208
  2. PLAQUENIL [Concomitant]
     Indication: SYSTEMIC LUPUS ERYTHEMATOSUS
  3. PERCOCET [Concomitant]
  4. PREDNISONE [Concomitant]
  5. VICODIN [Concomitant]
  6. AMBIEN [Concomitant]

REACTIONS (4)
  - Pericarditis [Unknown]
  - Gastroenteritis norovirus [Unknown]
  - Osteonecrosis [Unknown]
  - Hip surgery [Unknown]
